FAERS Safety Report 8804405 (Version 1)
Quarter: 2012Q4

REPORT INFORMATION
  Report Type: 
  Country: US (occurrence: US)
  Receive Date: 20120923
  Receipt Date: 20120923
  Transmission Date: 20130627
  Serious: No
  Sender: FDA-Public Use
  Company Number: US-TEVA-359958USA

PATIENT
  Sex: Female

DRUGS (1)
  1. AZILECT [Suspect]
     Dosage: .5 Milligram Daily;
     Route: 048
     Dates: start: 20120806, end: 20120911

REACTIONS (2)
  - Nervousness [Recovering/Resolving]
  - Tremor [Recovering/Resolving]
